FAERS Safety Report 23348392 (Version 1)
Quarter: 2023Q4

REPORT INFORMATION
  Report Type: Report from Study
  Country: CA (occurrence: CA)
  Receive Date: 20231228
  Receipt Date: 20231228
  Transmission Date: 20240110
  Serious: Yes (Other)
  Sender: FDA-Public Use
  Company Number: CA-JNJFOC-20231259646

PATIENT
  Age: 35 Year
  Sex: Male

DRUGS (3)
  1. STELARA [Suspect]
     Active Substance: USTEKINUMAB
     Indication: Crohn^s disease
     Route: 058
     Dates: start: 20190930
  2. STELARA [Suspect]
     Active Substance: USTEKINUMAB
  3. PREVACID [Concomitant]
     Active Substance: LANSOPRAZOLE

REACTIONS (2)
  - Diabetes mellitus [Recovering/Resolving]
  - Haematemesis [Recovering/Resolving]

NARRATIVE: CASE EVENT DATE: 20230101
